FAERS Safety Report 9226747 (Version 1)
Quarter: 2013Q2

REPORT INFORMATION
  Report Type: Spontaneous
  Country: US (occurrence: None)
  Receive Date: 20130410
  Receipt Date: 20130410
  Transmission Date: 20140414
  Serious: No
  Sender: FDA-Public Use
  Company Number: None

PATIENT
  Age: 62 Year
  Sex: Female

DRUGS (2)
  1. PEGASYS [Suspect]
     Indication: CHRONIC HEPATITIS C
     Route: 058
     Dates: start: 20130208
  2. RIBAVIRIN [Suspect]
     Indication: CHRONIC HEPATITIS C
     Dosage: 2 TABS (400MG) +3 TABS (600 MG) Q MORNING + Q EVENING ORAL
     Route: 048
     Dates: start: 20130208

REACTIONS (8)
  - Rash pruritic [None]
  - Rash papular [None]
  - Pruritus [None]
  - Red blood cell count decreased [None]
  - Blood iron decreased [None]
  - Haematocrit decreased [None]
  - Dry mouth [None]
  - Fluid intake reduced [None]
